FAERS Safety Report 4746128-8 (Version None)
Quarter: 2005Q3

REPORT INFORMATION
  Report Type: 
  Country: None (occurrence: None)
  Receive Date: 20050816
  Receipt Date: 20050801
  Transmission Date: 20060218
  Serious: Yes (Death)
  Sender: FDA-Public Use
  Company Number: 2005S1007278

PATIENT
  Age: 62 Year
  Sex: Female

DRUGS (5)
  1. CLOZAPINE [Suspect]
     Dosage: 25 MG; HS; PO
     Route: 048
     Dates: start: 20040701
  2. CLOZAPINE [Suspect]
     Dosage: 100 MG; HS; PO
     Route: 048
     Dates: start: 20040701, end: 20050701
  3. IPRATROPIUM BROMIDE [Concomitant]
  4. PREDNISONE [Concomitant]
  5. LEVOFLOXACIN [Concomitant]

REACTIONS (1)
  - DEATH [None]
